FAERS Safety Report 18800907 (Version 2)
Quarter: 2021Q1

REPORT INFORMATION
  Report Type: Report from Study
  Country: US (occurrence: US)
  Receive Date: 20210128
  Receipt Date: 20210216
  Transmission Date: 20210419
  Serious: Yes (Hospitalization, Other)
  Sender: FDA-Public Use
  Company Number: US-ASTRAZENECA-2021A011141

PATIENT
  Sex: Female

DRUGS (1)
  1. TAGRISSO [Suspect]
     Active Substance: OSIMERTINIB
     Indication: LUNG NEOPLASM MALIGNANT
     Dosage: 80 MG EVERY OTHER DAY, THEN NEXT WEEK AFTER BLOOD WORK, WILL INCREASE TAGRISSO FREQUENCY TO DAILY...
     Route: 048
     Dates: start: 202007

REACTIONS (6)
  - Lung disorder [Unknown]
  - Fatigue [Unknown]
  - Pneumonia [Unknown]
  - Coronavirus test negative [Unknown]
  - Oxygen saturation decreased [Unknown]
  - Trematode infection [Unknown]
